FAERS Safety Report 12950353 (Version 1)
Quarter: 2016Q4

REPORT INFORMATION
  Report Type: Spontaneous
  Country: GR (occurrence: GR)
  Receive Date: 20161116
  Receipt Date: 20161116
  Transmission Date: 20170207
  Serious: Yes (Other)
  Sender: FDA-Public Use
  Company Number: GR-ABBVIE-16P-066-1783611-00

PATIENT
  Age: 10 Year
  Sex: Female
  Weight: 34.4 kg

DRUGS (1)
  1. ELITYRAN [Suspect]
     Active Substance: LEUPROLIDE ACETATE
     Indication: PRECOCIOUS PUBERTY
     Dosage: 3.75 MG, UNK
     Route: 030
     Dates: start: 20150730, end: 20161013

REACTIONS (3)
  - Pain [Unknown]
  - Skin burning sensation [Unknown]
  - Paraesthesia [Unknown]

NARRATIVE: CASE EVENT DATE: 201606
